FAERS Safety Report 5558689-X (Version None)
Quarter: 2007Q4

REPORT INFORMATION
  Report Type: 
  Country: None (occurrence: None)
  Receive Date: 20071214
  Receipt Date: 20071203
  Transmission Date: 20080405
  Serious: Yes (Other)
  Sender: FDA-Public Use
  Company Number: FR-PFIZER INC-2007102765

PATIENT
  Age: 65 Year
  Sex: Female

DRUGS (4)
  1. GABAPENTIN [Suspect]
     Indication: CONVULSION
     Route: 048
  2. NIMODIPINE [Concomitant]
     Indication: CONVULSION
     Dosage: TEXT:2 MG/H
     Route: 042
  3. ACETAMINOPHEN [Concomitant]
     Indication: CONVULSION
     Dosage: TEXT:1 G-FREQ:EVERY 6 HOURS
  4. OMEPRAZOLE [Concomitant]
     Indication: CONVULSION
     Route: 048

REACTIONS (6)
  - ANTICONVULSANT DRUG LEVEL BELOW THERAPEUTIC [None]
  - BRAIN OEDEMA [None]
  - COMA [None]
  - HYPERAMMONAEMIA [None]
  - INTRACRANIAL HYPOTENSION [None]
  - TOXIC ENCEPHALOPATHY [None]
